FAERS Safety Report 6441055-2 (Version None)
Quarter: 2009Q4

REPORT INFORMATION
  Report Type: 
  Country: None (occurrence: None)
  Receive Date: 20091102
  Receipt Date: 20071010
  Transmission Date: 20100525
  Serious: Yes (Hospitalization, Other)
  Sender: FDA-Public Use
  Company Number: CART-10496

PATIENT
  Age: 29 Year
  Sex: Female

DRUGS (3)
  1. CARTICEL [Suspect]
     Indication: ARTHROPATHY
     Dosage: 1 NA, ONCE, OTHER
     Route: 050
     Dates: start: 20070917, end: 20070917
  2. PEGASUS MEMBRANE () [Suspect]
     Indication: ARTHROPATHY
     Dosage: 1 NA, ONCE
     Dates: start: 20070917, end: 20070917
  3. CLEOCIN (CLINDAMYCIN HYDROCHLORIDE) [Concomitant]

REACTIONS (4)
  - ARTHROFIBROSIS [None]
  - CHONDROMALACIA [None]
  - GRAFT OVERGROWTH [None]
  - SYNOVITIS [None]
